FAERS Safety Report 10654080 (Version 1)
Quarter: 2014Q4

REPORT INFORMATION
  Report Type: Spontaneous
  Country: US (occurrence: None)
  Receive Date: 20141215
  Receipt Date: 20141215
  Transmission Date: 20150529
  Serious: No
  Sender: FDA-Public Use
  Company Number: None

PATIENT
  Age: 34 Year
  Sex: Female
  Weight: 60.33 kg

DRUGS (1)
  1. BLISTEX MEDICATED MINT LIP BALM [Suspect]
     Active Substance: DIMETHICONE\OXYBENZONE\PADIMATE O

REACTIONS (3)
  - Application site erythema [None]
  - Application site pain [None]
  - Chemical injury [None]

NARRATIVE: CASE EVENT DATE: 20141212
